FAERS Safety Report 14574521 (Version 1)
Quarter: 2018Q1

REPORT INFORMATION
  Report Type: Spontaneous
  Country: IT (occurrence: IT)
  Receive Date: 20180226
  Receipt Date: 20180226
  Transmission Date: 20180509
  Serious: Yes (Other)
  Sender: FDA-Public Use
  Company Number: IT-BRISTOL-MYERS SQUIBB COMPANY-BMS-2018-013614

PATIENT
  Age: 70 Year
  Sex: Male
  Weight: 166 kg

DRUGS (1)
  1. OPDIVO [Suspect]
     Active Substance: NIVOLUMAB
     Indication: LUNG CANCER METASTATIC
     Dosage: 200 MG, QCYCLE
     Route: 042
     Dates: start: 20160926, end: 20180124

REACTIONS (1)
  - Radial nerve palsy [Unknown]

NARRATIVE: CASE EVENT DATE: 20180206
